FAERS Safety Report 25842460 (Version 1)
Quarter: 2025Q3

REPORT INFORMATION
  Report Type: Spontaneous
  Country: EU (occurrence: EU)
  Receive Date: 20250924
  Receipt Date: 20250924
  Transmission Date: 20251021
  Serious: Yes (Congenital Anomaly, Other)
  Sender: SANOFI AVENTIS
  Company Number: None

PATIENT
  Age: 1 Day
  Sex: Female
  Weight: 2 kg

DRUGS (3)
  1. DUPIXENT [Suspect]
     Active Substance: DUPILUMAB
     Indication: Dermatitis atopic
     Dosage: 300 MG, Q4W
     Route: 064
     Dates: start: 20241107, end: 20241115
  2. PREDNICARBATE [Suspect]
     Active Substance: PREDNICARBATE
     Indication: Dermatitis atopic
     Dosage: 1 DF, QD
     Route: 064
     Dates: start: 20241107, end: 20250730
  3. INFLIXIMAB [Suspect]
     Active Substance: INFLIXIMAB
     Indication: Colitis ulcerative
     Dosage: 450 MG, Q7W
     Route: 064
     Dates: start: 20241107, end: 20250730

REACTIONS (4)
  - Ventricular septal defect [Not Recovered/Not Resolved]
  - Atrial septal defect [Not Recovered/Not Resolved]
  - Low birth weight baby [Recovered/Resolved]
  - Exposure during pregnancy [Unknown]

NARRATIVE: CASE EVENT DATE: 20240101
